FAERS Safety Report 6694236-7 (Version None)
Quarter: 2010Q2

REPORT INFORMATION
  Report Type: 
  Country: None (occurrence: None)
  Receive Date: 20100423
  Receipt Date: 20100419
  Transmission Date: 20101027
  Serious: Yes (Life-Threatening, Other)
  Sender: FDA-Public Use
  Company Number: JP-SANOFI-AVENTIS-2010SA022723

PATIENT
  Age: 74 Year
  Sex: Male
  Weight: 53 kg

DRUGS (5)
  1. OXALIPLATIN [Suspect]
     Indication: COLON CANCER RECURRENT
     Route: 041
     Dates: start: 20100203, end: 20100203
  2. OXALIPLATIN [Suspect]
     Route: 041
     Dates: start: 20100224, end: 20100224
  3. AVASTIN [Suspect]
     Indication: COLON CANCER RECURRENT
     Route: 041
     Dates: start: 20100203, end: 20100203
  4. AVASTIN [Suspect]
     Route: 041
     Dates: start: 20100224, end: 20100224
  5. XELODA [Suspect]
     Indication: COLON CANCER RECURRENT
     Route: 048
     Dates: start: 20100202, end: 20100312

REACTIONS (3)
  - DIARRHOEA [None]
  - DISSEMINATED INTRAVASCULAR COAGULATION [None]
  - RENAL FAILURE ACUTE [None]
